FAERS Safety Report 9022588 (Version 1)
Quarter: 2013Q1

REPORT INFORMATION
  Report Type: Spontaneous
  Country: US (occurrence: US)
  Receive Date: 20130118
  Receipt Date: 20130118
  Transmission Date: 20140127
  Serious: No
  Sender: FDA-Public Use
  Company Number: US-GLAXOSMITHKLINE-A0992057A

PATIENT
  Age: 78 Year
  Sex: Male

DRUGS (10)
  1. PROMACTA [Suspect]
     Indication: PRODUCT USED FOR UNKNOWN INDICATION
     Dosage: 50MG PER DAY
     Route: 048
  2. FUROSEMIDE [Concomitant]
  3. NORVASC [Concomitant]
     Dosage: 2.5MG CUMULATIVE DOSE
  4. LISINOPRIL [Concomitant]
  5. TAMSULOSIN [Concomitant]
  6. TOPROL XL [Concomitant]
  7. CRESTOR [Concomitant]
  8. POTASSIUM CHLORIDE [Concomitant]
  9. FOLIC ACID [Concomitant]
  10. ASPIRIN [Concomitant]

REACTIONS (1)
  - Drug ineffective [Unknown]
